FAERS Safety Report 21807885 (Version 1)
Quarter: 2023Q1

REPORT INFORMATION
  Report Type: Spontaneous
  Country: US (occurrence: US)
  Receive Date: 20230103
  Receipt Date: 20230103
  Transmission Date: 20230418
  Serious: No
  Sender: FDA-Public Use
  Company Number: US-UNITED THERAPEUTICS-UNT-2022-031749

PATIENT
  Sex: Male
  Weight: 95.238 kg

DRUGS (2)
  1. TYVASO [Suspect]
     Active Substance: TREPROSTINIL
     Indication: Pulmonary arterial hypertension
     Dosage: 72 ?G, QID
     Dates: start: 2022
  2. TYVASO [Suspect]
     Active Substance: TREPROSTINIL
     Dosage: UNK
     Dates: start: 20220408

REACTIONS (4)
  - Accident [Recovered/Resolved with Sequelae]
  - Head injury [Unknown]
  - Gait disturbance [Unknown]
  - Physical disability [Unknown]

NARRATIVE: CASE EVENT DATE: 20220101
